FAERS Safety Report 5192806-9 (Version None)
Quarter: 2006Q4

REPORT INFORMATION
  Report Type: 
  Country: None (occurrence: None)
  Receive Date: 20061228
  Receipt Date: 20051103
  Transmission Date: 20070319
  Serious: No
  Sender: FDA-Public Use
  Company Number: US-GLAXOSMITHKLINE-A0580936A

PATIENT
  Age: 45 Year
  Sex: Female

DRUGS (2)
  1. FLONASE [Suspect]
     Route: 045
  2. NO CONCURRENT MEDICATION [Concomitant]

REACTIONS (2)
  - OSTEOPOROSIS [None]
  - VENTRICULAR EXTRASYSTOLES [None]
